FAERS Safety Report 24116173 (Version 1)
Quarter: 2024Q3

REPORT INFORMATION
  Report Type: Spontaneous
  Country: JP (occurrence: JP)
  Receive Date: 20240722
  Receipt Date: 20240722
  Transmission Date: 20241016
  Serious: Yes (Death, Hospitalization, Other)
  Sender: SPECGX
  Company Number: JP-SPECGX-T202401532

PATIENT
  Age: 5 Decade
  Sex: Male

DRUGS (7)
  1. METHADONE [Suspect]
     Active Substance: METHADONE HYDROCHLORIDE
     Indication: Cancer pain
     Dosage: 15 MILLIGRAM, QD
     Route: 048
  2. FLUOROURACIL [Suspect]
     Active Substance: FLUOROURACIL
     Indication: Rectal cancer
     Dosage: UNK
     Route: 065
  3. LEUCOVORIN [Suspect]
     Active Substance: LEUCOVORIN\LEUCOVORIN CALCIUM
     Indication: Rectal cancer
     Dosage: UNK
     Route: 065
  4. OXALIPLATIN [Suspect]
     Active Substance: OXALIPLATIN
     Indication: Rectal cancer
     Dosage: UNK
     Route: 065
  5. BEVACIZUMAB [Suspect]
     Active Substance: BEVACIZUMAB
     Indication: Rectal cancer
     Dosage: UNK
     Route: 065
  6. IRINOTECAN [Suspect]
     Active Substance: IRINOTECAN
     Indication: Rectal cancer
     Dosage: UNK
     Route: 065
  7. LOXOPROFEN SODIUM [Concomitant]
     Active Substance: LOXOPROFEN SODIUM
     Indication: Cancer pain
     Dosage: 120 MILLIGRAM, QD
     Route: 048

REACTIONS (8)
  - Rectal cancer [Fatal]
  - Neoplasm progression [Fatal]
  - Ileus [Recovering/Resolving]
  - Metastases to peritoneum [Unknown]
  - Hydronephrosis [Unknown]
  - Intestinal dilatation [Unknown]
  - Renal impairment [Unknown]
  - Anaemia [Unknown]
